FAERS Safety Report 8313248-0 (Version None)
Quarter: 2012Q2

REPORT INFORMATION
  Report Type: 
  Country: None (occurrence: None)
  Receive Date: 20120426
  Receipt Date: 20120412
  Transmission Date: 20120825
  Serious: Yes (Other)
  Sender: FDA-Public Use
  Company Number: CN-PFIZER INC-2012091522

PATIENT
  Age: 5 Month
  Sex: Male

DRUGS (1)
  1. IBUPROFEN [Suspect]
     Dosage: 0.625 ML, 2X/DAY
     Route: 048
     Dates: start: 20120408, end: 20120408

REACTIONS (3)
  - RASH GENERALISED [None]
  - DYSPNOEA [None]
  - DIARRHOEA [None]
